FAERS Safety Report 4289659-X (Version None)
Quarter: 2004Q1

REPORT INFORMATION
  Report Type: 
  Country: None (occurrence: None)
  Receive Date: 20040126
  Receipt Date: 20031009
  Transmission Date: 20041129
  Serious: No
  Sender: FDA-Public Use
  Company Number: USA031048773

PATIENT
  Age: 73 Year
  Sex: Female

DRUGS (4)
  1. FORTEO [Suspect]
     Indication: FRACTURE
     Dates: start: 20030501
  2. FORTEO [Suspect]
     Indication: PROPHYLAXIS
     Dates: start: 20030501
  3. SOTALOL HCL [Concomitant]
  4. ASPIRIN [Concomitant]

REACTIONS (1)
  - INJECTION SITE HAEMORRHAGE [None]
